FAERS Safety Report 9005998 (Version 2)
Quarter: 2013Q1

REPORT INFORMATION
  Report Type: Spontaneous
  Country: US (occurrence: US)
  Receive Date: 20130109
  Receipt Date: 20130131
  Transmission Date: 20140127
  Serious: Yes (Other)
  Sender: FDA-Public Use
  Company Number: US-PFIZER INC-2013007137

PATIENT
  Age: 85 Year
  Sex: Female
  Weight: 83 kg

DRUGS (20)
  1. XALATAN [Suspect]
     Indication: GLAUCOMA
     Dosage: 1 GTT(ONE DROP IN BOTH EYE), 1X/DAY
     Route: 047
  2. METFORMIN [Concomitant]
     Indication: DIABETES MELLITUS
     Dosage: UNK
  3. GLYBURIDE [Concomitant]
     Indication: DIABETES MELLITUS
     Dosage: UNK
  4. ALBUTEROL/IPRATROPIUM [Concomitant]
     Indication: ASTHMA
     Dosage: UNK
  5. GUANFACINE [Concomitant]
     Indication: BLOOD PRESSURE ABNORMAL
     Dosage: UNK
  6. DILTIAZEM [Concomitant]
     Dosage: 120 MG, 2X/DAY
  7. LOSARTAN [Concomitant]
     Dosage: UNK
  8. BUMETANIDE [Concomitant]
     Dosage: UNK
  9. POTASSIUM CHLORIDE [Concomitant]
     Dosage: UNK
  10. ZETIA [Concomitant]
     Indication: BLOOD CHOLESTEROL ABNORMAL
     Dosage: UNK
  11. TYLENOL [Concomitant]
     Dosage: UNK
  12. MAGNESIUM OXIDE [Concomitant]
     Dosage: UNK, 1X/DAY
  13. WARFARIN [Concomitant]
     Dosage: UNK
  14. PROMETHAZINE/CODEINE [Concomitant]
     Dosage: UNK
  15. DUPHALAC [Concomitant]
     Indication: DIARRHOEA
     Dosage: UNK
  16. NYSTATIN [Concomitant]
     Dosage: UNK
  17. PILOCARPINE [Concomitant]
     Dosage: UNK
  18. POLYETHYLENE-GLYCOL [Concomitant]
     Dosage: UNK
  19. ALPRAZOLAM [Concomitant]
     Dosage: UNK
  20. RANITIDINE [Concomitant]
     Dosage: UNK

REACTIONS (3)
  - Fall [Unknown]
  - Hallucination, auditory [Unknown]
  - Fall [Unknown]
